FAERS Safety Report 19270797 (Version 3)
Quarter: 2021Q3

REPORT INFORMATION
  Report Type: Report from Study
  Country: PA (occurrence: PA)
  Receive Date: 20210518
  Receipt Date: 20210820
  Transmission Date: 20211014
  Serious: No
  Sender: FDA-Public Use
  Company Number: PA-INCYTE CORPORATION-2021IN003820

PATIENT

DRUGS (4)
  1. JAKAVI [Suspect]
     Active Substance: RUXOLITINIB
     Indication: BONE MARROW DISORDER
     Dosage: 10 MG, BID
     Route: 048
     Dates: start: 20201109, end: 202012
  2. AMLODIPINE [Concomitant]
     Active Substance: AMLODIPINE BESYLATE
     Indication: HYPERTENSION
     Dosage: 1 OF 5 MG, Q24H (7 YEARS AGO APPROX)
     Route: 065
  3. JAKAVI [Suspect]
     Active Substance: RUXOLITINIB
     Indication: PRIMARY MYELOFIBROSIS
     Dosage: 10 MG, TID
     Route: 048
     Dates: start: 202011, end: 202012
  4. JAKAVI [Suspect]
     Active Substance: RUXOLITINIB
     Dosage: 1 OF 5 MG, Q12H
     Route: 048
     Dates: start: 202010, end: 202012

REACTIONS (8)
  - Nausea [Unknown]
  - Somnolence [Unknown]
  - Platelet count decreased [Unknown]
  - Dizziness [Unknown]
  - Inappropriate schedule of product administration [Unknown]
  - Bone marrow disorder [Unknown]
  - Platelet count increased [Unknown]
  - Feeling abnormal [Unknown]
